FAERS Safety Report 11310941 (Version 16)
Quarter: 2020Q3

REPORT INFORMATION
  Report Type: Other
  Country: DE (occurrence: DE)
  Receive Date: 20150726
  Receipt Date: 20200919
  Transmission Date: 20201102
  Serious: Yes (Hospitalization)
  Sender: FDA-Public Use
  Company Number: DE-ROCHE-1612391

PATIENT
  Age: 60 Year
  Sex: Female

DRUGS (13)
  1. ROACTEMRA [Suspect]
     Active Substance: TOCILIZUMAB
     Indication: GIANT CELL ARTERITIS
     Route: 042
     Dates: start: 201201
  2. IBANDRONIC ACID. [Concomitant]
     Active Substance: IBANDRONIC ACID
  3. ROACTEMRA [Suspect]
     Active Substance: TOCILIZUMAB
     Indication: GIANT CELL ARTERITIS
     Dosage: DATE OF LAST DOSE: 30/AUG/2015
     Route: 058
     Dates: start: 20150101
  4. ROACTEMRA [Suspect]
     Active Substance: TOCILIZUMAB
     Indication: RHEUMATOID ARTHRITIS
     Route: 058
     Dates: start: 20170906, end: 20171112
  5. ROACTEMRA [Suspect]
     Active Substance: TOCILIZUMAB
     Route: 058
     Dates: start: 20171113
  6. VICTOZA [Concomitant]
     Active Substance: LIRAGLUTIDE
     Indication: WEIGHT INCREASED
  7. NOVOTHYRAL [Concomitant]
     Active Substance: LEVOTHYROXINE SODIUM\LIOTHYRONINE SODIUM
  8. IBANDRONIC ACID. [Concomitant]
     Active Substance: IBANDRONIC ACID
     Dates: start: 20190605
  9. L?THYROXIN [Concomitant]
     Active Substance: LEVOTHYROXINE SODIUM
  10. CORTISONE [Suspect]
     Active Substance: CORTISONE
     Indication: C-REACTIVE PROTEIN INCREASED
     Route: 065
  11. INSULIN [Concomitant]
     Active Substance: INSULIN NOS
  12. PANTOPRAZOL [Concomitant]
     Active Substance: PANTOPRAZOLE SODIUM
     Dosage: IN EVENING
  13. BONVIVA [Concomitant]
     Active Substance: IBANDRONATE SODIUM
     Dates: start: 20190605

REACTIONS (10)
  - Fluid retention [Not Recovered/Not Resolved]
  - Osteoporosis [Not Recovered/Not Resolved]
  - Musculoskeletal stiffness [Recovered/Resolved]
  - Lymphoedema [Not Recovered/Not Resolved]
  - Bronchitis [Recovered/Resolved]
  - Product storage error [Unknown]
  - Lymphatic disorder [Not Recovered/Not Resolved]
  - Endocarditis [Recovering/Resolving]
  - C-reactive protein increased [Recovered/Resolved]
  - Off label use [Unknown]

NARRATIVE: CASE EVENT DATE: 20150101
